FAERS Safety Report 6683106-6 (Version None)
Quarter: 2010Q2

REPORT INFORMATION
  Report Type: 
  Country: None (occurrence: None)
  Receive Date: 20100415
  Receipt Date: 20100413
  Transmission Date: 20101027
  Serious: Yes (Other)
  Sender: FDA-Public Use
  Company Number: CN-MERCK-1004CHN00012

PATIENT
  Age: 80 Year
  Sex: Female

DRUGS (2)
  1. ZOCOR [Suspect]
     Indication: CORONARY ARTERY DISEASE
     Route: 048
     Dates: start: 20070101, end: 20100401
  2. ZOCOR [Suspect]
     Indication: ANGINA PECTORIS
     Route: 048
     Dates: start: 20070101, end: 20100401

REACTIONS (5)
  - BLOOD CREATINE PHOSPHOKINASE INCREASED [None]
  - BLOOD CREATINE PHOSPHOKINASE MB INCREASED [None]
  - HAEMOGLOBINURIA [None]
  - MYALGIA [None]
  - RENAL IMPAIRMENT [None]
